FAERS Safety Report 9279433 (Version 2)
Quarter: 2013Q2

REPORT INFORMATION
  Report Type: Spontaneous
  Country: US (occurrence: US)
  Receive Date: 20130508
  Receipt Date: 20130510
  Transmission Date: 20140414
  Serious: No
  Sender: FDA-Public Use
  Company Number: US-009507513-1305USA000645

PATIENT
  Age: 20 Year
  Sex: Female

DRUGS (2)
  1. NEXPLANON [Suspect]
     Indication: CONTRACEPTION
     Dosage: ONCE, THREE YEARS
     Route: 059
     Dates: start: 20130416
  2. IMPLANON [Concomitant]
     Dosage: 1 DF, UNK
     Route: 059
     Dates: end: 20130416

REACTIONS (3)
  - Complication of device insertion [Recovering/Resolving]
  - Device difficult to use [Recovering/Resolving]
  - No adverse event [Unknown]
